FAERS Safety Report 9072621 (Version 1)
Quarter: 2013Q1

REPORT INFORMATION
  Report Type: Spontaneous
  Country: DE (occurrence: DE)
  Receive Date: 20130207
  Receipt Date: 20130207
  Transmission Date: 20140127
  Serious: Yes (Hospitalization)
  Sender: FDA-Public Use
  Company Number: DE-PFIZER INC-2013024118

PATIENT
  Age: 27 Year
  Sex: Male

DRUGS (3)
  1. PANTOPRAZOLE [Suspect]
     Dosage: UNK
     Route: 065
     Dates: start: 201301, end: 20130113
  2. AMOXICILLIN [Suspect]
     Indication: HELICOBACTER INFECTION
     Dosage: UNK
     Route: 065
     Dates: start: 201301, end: 20130113
  3. CLARITHROMYCIN [Suspect]
     Indication: HELICOBACTER INFECTION
     Dosage: UNK
     Dates: start: 201301, end: 20130113

REACTIONS (2)
  - Back pain [Recovering/Resolving]
  - Coordination abnormal [Recovering/Resolving]
